FAERS Safety Report 9285707 (Version 2)
Quarter: 2013Q2

REPORT INFORMATION
  Report Type: Report from Study
  Country: US (occurrence: US)
  Receive Date: 20130513
  Receipt Date: 20130607
  Transmission Date: 20140414
  Serious: Yes (Hospitalization, Other)
  Sender: FDA-Public Use
  Company Number: US-BAYER-2013-057181

PATIENT
  Age: 49 Year
  Sex: Male
  Weight: 87 kg

DRUGS (21)
  1. REGORAFENIB [Suspect]
     Indication: GASTROINTESTINAL STROMAL TUMOUR
     Dosage: CYCLE 1, TAKEN ORALLY FOR 21 DAYS IN A 28 DAY CYCLE
     Route: 048
     Dates: start: 20100809
  2. REGORAFENIB [Suspect]
     Indication: GASTROINTESTINAL STROMAL TUMOUR
     Dosage: DAILY DOSE 120 MG
     Route: 048
     Dates: start: 20130116
  3. REGORAFENIB [Suspect]
     Indication: GASTROINTESTINAL STROMAL TUMOUR
     Dosage: DAILY DOSE 120 MG
     Route: 048
     Dates: end: 20130422
  4. REGORAFENIB [Suspect]
     Indication: GASTROINTESTINAL STROMAL TUMOUR
     Dosage: 80 MG, QD
     Route: 048
     Dates: start: 20130508
  5. AMLODIPINE [Concomitant]
  6. CETIRIZINE [Concomitant]
  7. CRESTOR [Concomitant]
  8. IMODIUM [LOPERAMIDE HYDROCHLORIDE] [Concomitant]
  9. JANUVIA [Concomitant]
  10. LEVOTHYROXINE SODIUM [Concomitant]
  11. LEXAPRO [Concomitant]
  12. LIDOCAINE [Concomitant]
  13. LISINOPRIL [Concomitant]
  14. LORAZEPAM [Concomitant]
  15. METHYLPHENIDATE HYDROCHLORIDE [Concomitant]
  16. NYSTATIN [Concomitant]
  17. OXYCODONE [Concomitant]
  18. PROTONIX [Concomitant]
  19. WELCHOL [Concomitant]
  20. ZOFRAN [Concomitant]
  21. RITALIN [Concomitant]

REACTIONS (9)
  - Angina pectoris [Recovered/Resolved]
  - Dizziness [Recovered/Resolved]
  - Nausea [Recovered/Resolved]
  - Hyperhidrosis [Recovered/Resolved]
  - Pain in jaw [Recovered/Resolved]
  - Troponin increased [Recovered/Resolved]
  - Acute myocardial infarction [None]
  - Acute coronary syndrome [Not Recovered/Not Resolved]
  - Angina pectoris [None]
